FAERS Safety Report 14302976 (Version 1)
Quarter: 2017Q4

REPORT INFORMATION
  Report Type: Spontaneous
  Country: NL (occurrence: NL)
  Receive Date: 20171219
  Receipt Date: 20171219
  Transmission Date: 20180321
  Serious: Yes (Other)
  Sender: FDA-Public Use
  Company Number: NL-UPSHER-SMITH LABORATORIES, INC.-2017USL00331

PATIENT

DRUGS (2)
  1. FLUVOXAMINE MALEATE. [Suspect]
     Active Substance: FLUVOXAMINE MALEATE
     Indication: NEOPLASM
     Dosage: 100 MG, 1X/DAY
     Route: 065
  2. DOVITINIB [Suspect]
     Active Substance: DOVITINIB LACTATE
     Indication: NEOPLASM
     Dosage: 300 MG, 1X/DAY (CYCLE OF 5 DAYS ON, THEN 2 DAYS OFF)
     Route: 065

REACTIONS (2)
  - Drug interaction [Unknown]
  - Leukopenia [Unknown]
